FAERS Safety Report 20646862 (Version 1)
Quarter: 2022Q1

REPORT INFORMATION
  Report Type: Spontaneous
  Country: CA (occurrence: CA)
  Receive Date: 20220329
  Receipt Date: 20220329
  Transmission Date: 20220424
  Serious: Yes (Life-Threatening)
  Sender: FDA-Public Use
  Company Number: CA-TEVA-2022-CA-2020621

PATIENT
  Age: 23 Year
  Sex: Female
  Weight: 36 kg

DRUGS (3)
  1. METHOTREXATE [Suspect]
     Active Substance: METHOTREXATE
     Indication: Product used for unknown indication
     Route: 065
  2. CYCLOPHOSPHAMIDE [Suspect]
     Active Substance: CYCLOPHOSPHAMIDE
     Indication: Product used for unknown indication
     Route: 065
  3. RITUXIMAB [Concomitant]
     Active Substance: RITUXIMAB
     Indication: Product used for unknown indication
     Route: 065

REACTIONS (8)
  - Drug hypersensitivity [Unknown]
  - Glomerulonephritis rapidly progressive [Unknown]
  - Haemorrhage [Unknown]
  - Lung disorder [Unknown]
  - Nausea [Unknown]
  - Renal failure [Unknown]
  - Sinus disorder [Unknown]
  - Drug intolerance [Unknown]
